FAERS Safety Report 5445956-3 (Version None)
Quarter: 2007Q3

REPORT INFORMATION
  Report Type: 
  Country: None (occurrence: None)
  Receive Date: 20070907
  Receipt Date: 20070828
  Transmission Date: 20080115
  Serious: Yes (Death, Hospitalization)
  Sender: FDA-Public Use
  Company Number: FR-SOLVAY-00207033851

PATIENT
  Age: 79 Year
  Sex: Male

DRUGS (4)
  1. COVERSYL [Suspect]
     Indication: ILL-DEFINED DISORDER
     Dosage: DAILY DOSE: 2 MILLIGRAM(S)
     Route: 048
     Dates: end: 20070711
  2. AMIODARONE [Suspect]
     Indication: ILL-DEFINED DISORDER
     Dosage: DAILY DOSE: 200 MILLIGRAM(S), 5 A WEEK
     Route: 048
     Dates: end: 20070711
  3. DIGOXIN [Suspect]
     Indication: ILL-DEFINED DISORDER
     Dosage: DAILY DOSE: .25 MILLIGRAM(S)
     Route: 048
     Dates: end: 20070711
  4. PLAVIX [Suspect]
     Indication: ILL-DEFINED DISORDER
     Dosage: DAILY DOSE: 75 MILLIGRAM(S)
     Route: 048
     Dates: end: 20070711

REACTIONS (8)
  - HAEMODYNAMIC INSTABILITY [None]
  - HYPERKALAEMIA [None]
  - LUNG DISORDER [None]
  - MULTI-ORGAN FAILURE [None]
  - ORTHOPNOEA [None]
  - PLEURAL EFFUSION [None]
  - PNEUMONITIS [None]
  - RENAL FAILURE ACUTE [None]
